FAERS Safety Report 8837196 (Version 5)
Quarter: 2013Q4

REPORT INFORMATION
  Report Type: Report from Study
  Country: AT (occurrence: AT)
  Receive Date: 20121012
  Receipt Date: 20131017
  Transmission Date: 20140711
  Serious: Yes (Hospitalization)
  Sender: FDA-Public Use
  Company Number: AT-BRISTOL-MYERS SQUIBB COMPANY-16723363

PATIENT
  Age: 46 Year
  Sex: Female

DRUGS (3)
  1. IPILIMUMAB [Suspect]
     Indication: METASTATIC MALIGNANT MELANOMA
     Dosage: COURSES:3
     Route: 042
     Dates: start: 20120427, end: 20120608
  2. NEXIUM [Concomitant]
     Dates: start: 20120628
  3. URBASON [Concomitant]
     Dates: start: 20120629

REACTIONS (5)
  - Colitis ulcerative [Recovered/Resolved]
  - Diarrhoea [Recovered/Resolved]
  - Liver function test abnormal [Recovered/Resolved]
  - Epstein-Barr virus antibody positive [Recovered/Resolved]
  - Herpes virus infection [Recovered/Resolved]
